FAERS Safety Report 16816617 (Version 1)
Quarter: 2019Q3

REPORT INFORMATION
  Report Type: Spontaneous
  Country: CN (occurrence: CN)
  Receive Date: 20190917
  Receipt Date: 20190917
  Transmission Date: 20191005
  Serious: Yes (Hospitalization, Other)
  Sender: FDA-Public Use
  Company Number: CN-ROCHE-2401720

PATIENT
  Age: 30 Year
  Sex: Female

DRUGS (26)
  1. MABTHERA [Suspect]
     Active Substance: RITUXIMAB
     Route: 065
     Dates: start: 20170225
  2. MABTHERA [Suspect]
     Active Substance: RITUXIMAB
     Route: 065
     Dates: start: 20170323
  3. MABTHERA [Suspect]
     Active Substance: RITUXIMAB
     Route: 065
     Dates: start: 20170512
  4. GANCICLOVIR. [Suspect]
     Active Substance: GANCICLOVIR
     Indication: FEBRILE INFECTION
     Route: 065
     Dates: start: 201703
  5. VINDESINE [Concomitant]
     Active Substance: VINDESINE
     Route: 065
     Dates: start: 20170225
  6. ETOPOSIDE. [Concomitant]
     Active Substance: ETOPOSIDE
     Indication: BURKITT^S LYMPHOMA
     Route: 065
     Dates: start: 20170512
  7. CYCLOPHOSPHAMIDE. [Concomitant]
     Active Substance: CYCLOPHOSPHAMIDE
     Route: 065
     Dates: start: 20190512
  8. VINDESINE [Concomitant]
     Active Substance: VINDESINE
     Route: 065
     Dates: start: 20170512
  9. DEXAMETHASONE. [Concomitant]
     Active Substance: DEXAMETHASONE
     Indication: BURKITT^S LYMPHOMA
     Route: 065
     Dates: start: 20170111
  10. DEXAMETHASONE. [Concomitant]
     Active Substance: DEXAMETHASONE
     Route: 065
     Dates: start: 20170512
  11. DOXORUBICIN [Concomitant]
     Active Substance: DOXORUBICIN
     Route: 065
     Dates: start: 20170416
  12. CYCLOPHOSPHAMIDE. [Concomitant]
     Active Substance: CYCLOPHOSPHAMIDE
     Route: 065
     Dates: start: 20170225
  13. VINDESINE [Concomitant]
     Active Substance: VINDESINE
     Indication: BURKITT^S LYMPHOMA
     Route: 065
     Dates: start: 20170111
  14. EPIRUBICIN [Concomitant]
     Active Substance: EPIRUBICIN
     Route: 065
     Dates: start: 20170225
  15. METHOTREXATE. [Suspect]
     Active Substance: METHOTREXATE
     Route: 041
     Dates: start: 20170323
  16. EPIRUBICIN [Concomitant]
     Active Substance: EPIRUBICIN
     Indication: BURKITT^S LYMPHOMA
     Route: 065
     Dates: start: 20170111
  17. DEXAMETHASONE. [Concomitant]
     Active Substance: DEXAMETHASONE
     Route: 065
     Dates: start: 20170225
  18. MABTHERA [Suspect]
     Active Substance: RITUXIMAB
     Indication: BURKITT^S LYMPHOMA
     Route: 065
     Dates: start: 20170111
  19. CYTARABINE. [Concomitant]
     Active Substance: CYTARABINE
     Indication: BURKITT^S LYMPHOMA
     Route: 041
     Dates: start: 20170204
  20. METHYLPREDNISOLONE SODIUM SUCCINATE. [Concomitant]
     Active Substance: METHYLPREDNISOLONE SODIUM SUCCINATE
     Indication: BURKITT^S LYMPHOMA
     Route: 065
     Dates: start: 20170407
  21. METHYLPREDNISOLONE SODIUM SUCCINATE. [Concomitant]
     Active Substance: METHYLPREDNISOLONE SODIUM SUCCINATE
     Route: 065
     Dates: start: 20170416
  22. ETOPOSIDE. [Concomitant]
     Active Substance: ETOPOSIDE
     Route: 065
     Dates: start: 20170416
  23. CYCLOPHOSPHAMIDE. [Concomitant]
     Active Substance: CYCLOPHOSPHAMIDE
     Indication: BURKITT^S LYMPHOMA
     Route: 065
     Dates: start: 20170111
  24. CYTARABINE. [Concomitant]
     Active Substance: CYTARABINE
     Route: 041
     Dates: start: 20170323
  25. DOXORUBICIN [Concomitant]
     Active Substance: DOXORUBICIN
     Indication: BURKITT^S LYMPHOMA
     Route: 065
     Dates: start: 20170512
  26. METHOTREXATE. [Suspect]
     Active Substance: METHOTREXATE
     Indication: BURKITT^S LYMPHOMA
     Route: 041
     Dates: start: 20170204

REACTIONS (6)
  - Febrile infection [Recovering/Resolving]
  - Intentional product use issue [Unknown]
  - Off label use [Unknown]
  - Drug intolerance [Unknown]
  - Retinal haemorrhage [Unknown]
  - Bone marrow failure [Unknown]

NARRATIVE: CASE EVENT DATE: 20170324
